FAERS Safety Report 14217972 (Version 5)
Quarter: 2018Q2

REPORT INFORMATION
  Report Type: Spontaneous
  Country: DE (occurrence: DE)
  Receive Date: 20171123
  Receipt Date: 20180403
  Transmission Date: 20180711
  Serious: Yes (Death, Life-Threatening, Hospitalization, Other)
  Sender: FDA-Public Use
  Company Number: DE-LUPIN PHARMACEUTICALS INC.-2017-06740

PATIENT
  Age: 22 Year
  Sex: Female

DRUGS (5)
  1. QUETIAPINE. [Suspect]
     Active Substance: QUETIAPINE
     Indication: DELUSION
     Dosage: 600 MG, QD  (AT THE TIME OF DISCHARGE)
     Route: 065
  2. QUETIAPINE. [Suspect]
     Active Substance: QUETIAPINE
     Indication: SCHIZOPHRENIA
     Dosage: UNK
     Route: 065
  3. LORAZEPAM. [Concomitant]
     Active Substance: LORAZEPAM
     Indication: SCHIZOPHRENIA
     Dosage: 2 MG, QD
     Route: 065
  4. LORAZEPAM. [Concomitant]
     Active Substance: LORAZEPAM
     Indication: DELUSION
  5. LORAZEPAM. [Concomitant]
     Active Substance: LORAZEPAM
     Indication: OBSESSIVE THOUGHTS

REACTIONS (18)
  - Metabolic acidosis [Fatal]
  - Tachypnoea [Fatal]
  - Cardiopulmonary failure [Fatal]
  - Sepsis [Fatal]
  - Multiple organ dysfunction syndrome [Fatal]
  - Pneumonia fungal [Fatal]
  - Hypotonia [Fatal]
  - Hypotension [Fatal]
  - Pain [Fatal]
  - Loss of consciousness [Fatal]
  - Pharyngeal oedema [Fatal]
  - Body temperature increased [Fatal]
  - Circulatory collapse [Unknown]
  - Agranulocytosis [Fatal]
  - Hypoxia [Fatal]
  - Oropharyngeal pain [Fatal]
  - Nasopharyngitis [Fatal]
  - Pharyngotonsillitis [Fatal]
